FAERS Safety Report 14107388 (Version 1)
Quarter: 2017Q4

REPORT INFORMATION
  Report Type: Spontaneous
  Country: US (occurrence: US)
  Receive Date: 20171019
  Receipt Date: 20171019
  Transmission Date: 20180321
  Serious: Yes (Other)
  Sender: FDA-Public Use
  Company Number: US-COLGATE PALMOLIVE COMPANY-20171001408

PATIENT

DRUGS (2)
  1. COLGATE OPTIC WHITE ENAMEL WHITE LUMINOUS MINT [Suspect]
     Active Substance: SODIUM MONOFLUOROPHOSPHATE
     Indication: PRODUCT USED FOR UNKNOWN INDICATION
     Dosage: PEA SIZE AMOUNT OF TOOTHPASTE TWICE A DAY
     Route: 048
     Dates: start: 20170821, end: 201709
  2. COL MW OPTIC WHITE HIGH IMPACT WHITE CLEAN MINT (HYDROGEN PEROXIDE) [Suspect]
     Active Substance: HYDROGEN PEROXIDE
     Indication: PRODUCT USED FOR UNKNOWN INDICATION
     Dosage: ? CAP FULL OF MOUTHWASH ONCE A DAY
     Route: 048
     Dates: start: 20170821, end: 201709

REACTIONS (4)
  - Lip exfoliation [Not Recovered/Not Resolved]
  - Lip blister [Recovered/Resolved]
  - Oral discomfort [Recovered/Resolved]
  - Lip swelling [Recovered/Resolved]

NARRATIVE: CASE EVENT DATE: 20170822
